FAERS Safety Report 9849750 (Version 1)
Quarter: 2014Q1

REPORT INFORMATION
  Report Type: Spontaneous
  Country: US (occurrence: None)
  Receive Date: 20140127
  Receipt Date: 20140127
  Transmission Date: 20141002
  Serious: Yes (Life-Threatening, Hospitalization)
  Sender: FDA-Public Use
  Company Number: None

PATIENT
  Age: 46 Year
  Sex: Male
  Weight: 90.9 kg

DRUGS (2)
  1. ENOXAPARIN (GENERIC) [Suspect]
     Indication: DEEP VEIN THROMBOSIS
     Route: 058
     Dates: start: 20131228, end: 20140102
  2. ENOXAPARIN (GENERIC) [Suspect]
     Indication: PROPHYLAXIS
     Route: 058
     Dates: start: 20131228, end: 20140102

REACTIONS (6)
  - Metabolic acidosis [None]
  - Septic shock [None]
  - Haemorrhage [None]
  - Thrombocytopenia [None]
  - Haematemesis [None]
  - Toxicity to various agents [None]
